FAERS Safety Report 16663613 (Version 1)
Quarter: 2019Q3

REPORT INFORMATION
  Report Type: Spontaneous
  Country: US (occurrence: US)
  Receive Date: 20190802
  Receipt Date: 20190802
  Transmission Date: 20191004
  Serious: Yes (Hospitalization, Other)
  Sender: FDA-Public Use
  Company Number: US-TASMAN PHARMA, INC.-2019TSM00066

PATIENT
  Age: 52 Year
  Sex: Male

DRUGS (7)
  1. CLOZAPINE. [Suspect]
     Active Substance: CLOZAPINE
     Dosage: 300 MG, 1X/DAY (NIGHTLY)
     Route: 065
  2. CLOZAPINE. [Suspect]
     Active Substance: CLOZAPINE
     Indication: SCHIZOPHRENIA
     Dosage: 600 MG, 1X/DAY (NIGHTLY)
     Route: 065
  3. CLOZAPINE. [Suspect]
     Active Substance: CLOZAPINE
     Dosage: 50 MG, 1X/DAY (NIGHTLY; RE-STARTED WITH A PLAN TO INCREASE IT BY 25 MG NIGHTLY)
     Route: 065
  4. RISPERIDONE. [Concomitant]
     Active Substance: RISPERIDONE
     Dosage: 4 MG, 1X/DAY (NIGHTLY)
     Route: 065
  5. CLOZAPINE. [Suspect]
     Active Substance: CLOZAPINE
     Dosage: 75 MG, 1X/DAY (NIGHTLY)
     Route: 065
  6. CLOZAPINE. [Suspect]
     Active Substance: CLOZAPINE
     Dosage: 400 MG, 1X/DAY (NIGHTLY)
     Route: 065
  7. AMLODIPINE [Concomitant]
     Active Substance: AMLODIPINE BESYLATE
     Dosage: 10 MG, 1X/DAY
     Route: 065

REACTIONS (3)
  - Catatonia [Recovered/Resolved]
  - Tachycardia [Recovered/Resolved]
  - Drug withdrawal syndrome [Recovered/Resolved]
